FAERS Safety Report 7710946-4 (Version None)
Quarter: 2011Q3

REPORT INFORMATION
  Report Type: 
  Country: None (occurrence: None)
  Receive Date: 20110825
  Receipt Date: 20110822
  Transmission Date: 20111222
  Serious: Yes (Hospitalization)
  Sender: FDA-Public Use
  Company Number: US-MERCK-1102USA02268

PATIENT
  Age: 63 Year
  Sex: Female

DRUGS (14)
  1. FOSAMAX [Suspect]
     Indication: OSTEOPOROSIS
     Route: 048
     Dates: start: 20030401
  2. VITAMINS (UNSPECIFIED) [Concomitant]
     Route: 065
  3. VITAMIN E [Concomitant]
     Route: 065
  4. FOSAMAX [Suspect]
     Indication: OSTEOPENIA
     Route: 048
     Dates: start: 20030401
  5. FOSAMAX [Suspect]
     Route: 048
     Dates: end: 20070501
  6. FOSAMAX PLUS D [Suspect]
     Route: 048
     Dates: start: 20080424
  7. FOSAMAX PLUS D [Suspect]
     Route: 048
     Dates: start: 20080424
  8. ASCORBIC ACID [Concomitant]
     Route: 065
  9. PREMPRO [Concomitant]
     Route: 065
     Dates: start: 20000301
  10. FOSAMAX PLUS D [Suspect]
     Indication: OSTEOPENIA
     Route: 048
     Dates: start: 20070501, end: 20090201
  11. CALCIUM (UNSPECIFIED) [Concomitant]
     Route: 065
  12. ACTONEL [Suspect]
     Indication: OSTEOPENIA
     Route: 065
     Dates: start: 20010101, end: 20030601
  13. FOSAMAX [Suspect]
     Route: 048
     Dates: end: 20070501
  14. FOSAMAX PLUS D [Suspect]
     Indication: OSTEOPOROSIS
     Route: 048
     Dates: start: 20070501, end: 20090201

REACTIONS (7)
  - COUGH [None]
  - FALL [None]
  - CERVICOBRACHIAL SYNDROME [None]
  - PAIN IN EXTREMITY [None]
  - FEMUR FRACTURE [None]
  - CARPAL TUNNEL SYNDROME [None]
  - RIB FRACTURE [None]
